FAERS Safety Report 8369185-9 (Version None)
Quarter: 2012Q2

REPORT INFORMATION
  Report Type: 
  Country: None (occurrence: None)
  Receive Date: 20120518
  Receipt Date: 20120514
  Transmission Date: 20120825
  Serious: Yes (Hospitalization)
  Sender: FDA-Public Use
  Company Number: US-BAYER-2011-081907

PATIENT
  Age: 36 Year
  Sex: Female
  Weight: 77 kg

DRUGS (13)
  1. FLUOXETINE HYDROCHLORIDE [Concomitant]
     Dosage: 10 MG, UNK
  2. ALLEGRA D 24 HOUR [Concomitant]
     Dosage: 1 DAILY
  3. DECADRON [Concomitant]
     Dosage: 0.5 UNK, UNK
  4. VERAMYST [Concomitant]
     Dosage: 27.5 ?G 1 SPRAY, 2 SPRAYS EACH NOSTRIL DAILY
  5. XANAX [Concomitant]
     Dosage: 0.5 MG, PRN DAILY
  6. YAZ [Suspect]
     Indication: ACNE
     Dosage: UNK
     Dates: start: 20080415, end: 20080919
  7. YAZ [Suspect]
     Indication: PREMENSTRUAL SYNDROME
  8. PREDNISONE [Concomitant]
     Dosage: 10 MG, TID
  9. PROZAC [Concomitant]
     Indication: DEPRESSION
     Dosage: 10 MG, DAILY
  10. PREDNISONE [Concomitant]
     Dosage: 10 MG, BID
  11. PREDNISONE [Concomitant]
     Dosage: 10 MG, QD
  12. LEVAQUIN [Concomitant]
     Dosage: 750 MG, UNK
  13. PREDNISONE [Concomitant]
     Dosage: 10 MG, 4 DAILY

REACTIONS (7)
  - ABDOMINAL PAIN [None]
  - FEAR OF DISEASE [None]
  - EMOTIONAL DISTRESS [None]
  - PULMONARY EMBOLISM [None]
  - INJURY [None]
  - ANXIETY [None]
  - PAIN [None]
